FAERS Safety Report 25098344 (Version 1)
Quarter: 2025Q1

REPORT INFORMATION
  Report Type: Spontaneous
  Country: CA (occurrence: CA)
  Receive Date: 20250320
  Receipt Date: 20250320
  Transmission Date: 20250408
  Serious: Yes (Death, Life-Threatening, Hospitalization, Disabling, Other)
  Sender: SANOFI AVENTIS
  Company Number: CA-SA-SAC20240119000091

PATIENT
  Age: 80 Year
  Sex: Male
  Weight: 69 kg

DRUGS (6)
  1. METRONIDAZOLE [Suspect]
     Active Substance: METRONIDAZOLE
     Indication: Off label use
     Dosage: 500 MG, TID
     Route: 048
  2. METRONIDAZOLE [Suspect]
     Active Substance: METRONIDAZOLE
     Indication: Intentional product misuse
  3. METRONIDAZOLE [Suspect]
     Active Substance: METRONIDAZOLE
     Indication: Bacterial infection
  4. INSULIN ASPART [Suspect]
     Active Substance: INSULIN ASPART
     Indication: Diabetes mellitus
     Route: 065
  5. INSULIN ASPART [Suspect]
     Active Substance: INSULIN ASPART
     Route: 058
  6. INSULIN ASPART [Suspect]
     Active Substance: INSULIN ASPART
     Route: 048

REACTIONS (16)
  - Cardiogenic shock [Fatal]
  - Death [Fatal]
  - Diabetes mellitus [Fatal]
  - Multiple organ dysfunction syndrome [Fatal]
  - Pulmonary embolism [Fatal]
  - Myasthenia gravis [Fatal]
  - Aortic stenosis [Fatal]
  - Ventricular fibrillation [Fatal]
  - Ascites [Fatal]
  - End stage renal disease [Fatal]
  - Sepsis [Fatal]
  - Chronic obstructive pulmonary disease [Fatal]
  - Product use in unapproved indication [Fatal]
  - Off label use [Fatal]
  - Intentional product misuse [Fatal]
  - Incorrect route of product administration [Fatal]
